FAERS Safety Report 8915031 (Version 1)
Quarter: 2012Q4

REPORT INFORMATION
  Report Type: 
  Country: US (occurrence: US)
  Receive Date: 20121116
  Receipt Date: 20121116
  Transmission Date: 20130627
  Serious: Yes (Hospitalization)
  Sender: FDA-Public Use
  Company Number: US-GLAXOSMITHKLINE-A1001215A

PATIENT
  Age: 55 Year
  Sex: Female

DRUGS (2)
  1. TYKERB [Suspect]
     Indication: BREAST CANCER
     Dosage: 1250MG Per day
     Route: 048
  2. XELODA [Suspect]
     Indication: BREAST CANCER
     Route: 065

REACTIONS (2)
  - Thermal burn [Unknown]
  - Adverse drug reaction [Unknown]
